FAERS Safety Report 7045979-7 (Version None)
Quarter: 2010Q4

REPORT INFORMATION
  Report Type: 
  Country: None (occurrence: None)
  Receive Date: 20101014
  Receipt Date: 20101011
  Transmission Date: 20110411
  Serious: Yes (Other)
  Sender: FDA-Public Use
  Company Number: US-PFIZER INC-2010099750

PATIENT
  Sex: Male

DRUGS (10)
  1. CHANTIX [Suspect]
     Indication: SMOKING CESSATION THERAPY
     Dosage: 1 TAB/DAY X 3, THEN 2 TABS DAILY.
     Dates: start: 20070801, end: 20070901
  2. OXYCODONE HCL AND ACETAMINOPHEN [Concomitant]
     Indication: PROCEDURAL PAIN
     Dosage: UNK
     Dates: start: 20061101, end: 20071001
  3. OXYCODONE HCL AND ACETAMINOPHEN [Concomitant]
     Indication: LIMB INJURY
  4. WELLBUTRIN [Concomitant]
     Indication: DEPRESSION
     Dosage: UNK
     Dates: start: 20060801, end: 20080201
  5. WELLBUTRIN [Concomitant]
     Indication: ANXIETY
  6. ZYBAN [Concomitant]
     Indication: DEPRESSION
     Dosage: UNK
     Dates: start: 20060801, end: 20071001
  7. ZYBAN [Concomitant]
     Indication: ANXIETY
  8. CELEXA [Concomitant]
     Indication: DEPRESSION
     Dosage: UNK
     Dates: start: 20060401, end: 20090901
  9. CELEXA [Concomitant]
     Indication: ANXIETY
  10. PEPCID [Concomitant]
     Indication: GASTROOESOPHAGEAL REFLUX DISEASE
     Dosage: UNK
     Dates: start: 20040601

REACTIONS (4)
  - ANXIETY [None]
  - DEPRESSION [None]
  - MENTAL DISORDER [None]
  - PANIC DISORDER [None]
